FAERS Safety Report 5955318-8 (Version None)
Quarter: 2008Q4

REPORT INFORMATION
  Report Type: 
  Country: None (occurrence: None)
  Receive Date: 20081117
  Receipt Date: 20081111
  Transmission Date: 20090506
  Serious: Yes (Other)
  Sender: FDA-Public Use
  Company Number: US-MERCK-0811USA01795

PATIENT
  Age: 6 Year
  Sex: Male

DRUGS (2)
  1. SINGULAIR [Suspect]
     Indication: ASTHMA
     Route: 048
     Dates: start: 20081001, end: 20081101
  2. CEC [Suspect]
     Indication: ASTHMA
     Route: 065
     Dates: start: 20081001, end: 20080101

REACTIONS (1)
  - HOMICIDAL IDEATION [None]
